FAERS Safety Report 7004137-2 (Version None)
Quarter: 2010Q3

REPORT INFORMATION
  Report Type: 
  Country: None (occurrence: None)
  Receive Date: 20100920
  Receipt Date: 20100126
  Transmission Date: 20110219
  Serious: No
  Sender: FDA-Public Use
  Company Number: US-WYE-H13270410

PATIENT
  Sex: Female

DRUGS (4)
  1. PRISTIQ [Suspect]
     Indication: DEPRESSION
     Route: 048
     Dates: start: 20090101, end: 20090101
  2. PRISTIQ [Suspect]
     Dosage: TRIED TO DISCONTINUE PRISTIQ TWICE IN THE PAST 6 MONTHS BUT HAD TO RESTART
     Route: 048
     Dates: start: 20090101, end: 20090101
  3. PRISTIQ [Suspect]
     Route: 048
     Dates: start: 20090101, end: 20100101
  4. PRISTIQ [Suspect]
     Dosage: CUT PRISTIQ IN HALF AND THEN IN QUARTERS AND TOOK 1/4 OR 1/2 TABLETS DAILY
     Route: 048
     Dates: start: 20100101, end: 20100123

REACTIONS (2)
  - DRUG WITHDRAWAL SYNDROME [None]
  - UNEVALUABLE EVENT [None]
